FAERS Safety Report 7047680-2 (Version None)
Quarter: 2010Q4

REPORT INFORMATION
  Report Type: 
  Country: None (occurrence: None)
  Receive Date: 20101015
  Receipt Date: 20101004
  Transmission Date: 20110411
  Serious: Yes (Hospitalization, Disabling, Other)
  Sender: FDA-Public Use
  Company Number: US-MERCK-0807USA00762

PATIENT
  Age: 81 Year
  Sex: Female
  Weight: 79 kg

DRUGS (5)
  1. FOSAMAX [Suspect]
     Indication: OSTEOPOROSIS PROPHYLAXIS
     Route: 048
     Dates: start: 20041001, end: 20050501
  2. FOSAMAX [Suspect]
     Route: 048
     Dates: start: 20060901
  3. FOSAMAX [Suspect]
     Route: 048
     Dates: start: 20040101, end: 20070101
  4. FOSAMAX [Suspect]
     Route: 048
     Dates: start: 19960101, end: 20070401
  5. FOSAMAX PLUS D [Suspect]
     Route: 065
     Dates: start: 20060401, end: 20060801

REACTIONS (37)
  - ADVERSE DRUG REACTION [None]
  - ALOPECIA [None]
  - ANAEMIA [None]
  - ANTINUCLEAR ANTIBODY POSITIVE [None]
  - AORTIC DILATATION [None]
  - BACK PAIN [None]
  - BLOOD CHOLESTEROL INCREASED [None]
  - BODY HEIGHT DECREASED [None]
  - BONE DENSITY DECREASED [None]
  - CAROTID ARTERY STENOSIS [None]
  - CARPAL TUNNEL SYNDROME [None]
  - CATARACT [None]
  - DIARRHOEA [None]
  - FALL [None]
  - FRACTURED SACRUM [None]
  - HAEMATURIA [None]
  - HYPERTENSION [None]
  - INFLUENZA [None]
  - IRON DEFICIENCY [None]
  - JOINT EFFUSION [None]
  - LEFT VENTRICULAR HYPERTROPHY [None]
  - MENISCUS LESION [None]
  - OEDEMA PERIPHERAL [None]
  - ORAL TORUS [None]
  - OSTEOARTHRITIS [None]
  - OSTEONECROSIS OF JAW [None]
  - OSTEOPENIA [None]
  - PARAESTHESIA [None]
  - RENAL CYST [None]
  - SINUS BRADYCARDIA [None]
  - SPINAL OSTEOARTHRITIS [None]
  - SYNCOPE [None]
  - SYNOVIAL CYST [None]
  - TIBIA FRACTURE [None]
  - TRICUSPID VALVE INCOMPETENCE [None]
  - VARICOSE VEIN [None]
  - VASCULAR CALCIFICATION [None]
